FAERS Safety Report 4840180-7 (Version None)
Quarter: 2005Q4

REPORT INFORMATION
  Report Type: 
  Country: None (occurrence: None)
  Receive Date: 20051125
  Receipt Date: 20051113
  Transmission Date: 20060501
  Serious: Yes (Other)
  Sender: FDA-Public Use
  Company Number: A-CH2005-10988

PATIENT
  Age: 39 Year
  Sex: Female

DRUGS (4)
  1. TRACLEER [Suspect]
     Indication: PULMONARY HYPERTENSION
  2. EPOPROSTENOL(EPOPROSTENOL) [Suspect]
  3. WARFARIN SODIUM [Concomitant]
  4. DEPAKOTE [Concomitant]

REACTIONS (14)
  - ANTINEUTROPHIL CYTOPLASMIC ANTIBODY POSITIVE [None]
  - BLOOD URINE PRESENT [None]
  - ELECTROCARDIOGRAM P WAVE ABNORMAL [None]
  - FOCAL GLOMERULOSCLEROSIS [None]
  - HAEMOPTYSIS [None]
  - LEUKOCYTOCLASTIC VASCULITIS [None]
  - OEDEMA PERIPHERAL [None]
  - PLATELET COUNT DECREASED [None]
  - PROTEIN URINE PRESENT [None]
  - PULMONARY ALVEOLAR HAEMORRHAGE [None]
  - RASH MACULO-PAPULAR [None]
  - RED BLOOD CELL ABNORMALITY [None]
  - RED BLOOD CELL SEDIMENTATION RATE INCREASED [None]
  - WEGENER'S GRANULOMATOSIS [None]
